FAERS Safety Report 9747217 (Version 2)
Quarter: 2013Q4

REPORT INFORMATION
  Report Type: Report from Study
  Country: SE (occurrence: SE)
  Receive Date: 20131212
  Receipt Date: 20131227
  Transmission Date: 20140711
  Serious: Yes (Hospitalization)
  Sender: FDA-Public Use
  Company Number: SE-AMGEN-SWECT2013086652

PATIENT
  Age: 64 Year
  Sex: Female

DRUGS (2)
  1. ETANERCEPT [Suspect]
     Indication: RHEUMATOID ARTHRITIS
     Dosage: 50 MG, SINGLE
     Route: 065
     Dates: start: 20070321, end: 20131113
  2. PREDNISOLONE [Concomitant]
     Dosage: 7.5 MG, UNK
     Dates: start: 20070321

REACTIONS (2)
  - Lung infiltration [Not Recovered/Not Resolved]
  - Lung infection [Not Recovered/Not Resolved]
